FAERS Safety Report 9060622 (Version 4)
Quarter: 2015Q4

REPORT INFORMATION
  Report Type: Report from Study
  Country: FR (occurrence: FR)
  Receive Date: 20130212
  Receipt Date: 20151201
  Transmission Date: 20160305
  Serious: Yes (Hospitalization)
  Sender: FDA-Public Use
  Company Number: FR-UCBSA-070465

PATIENT
  Age: 49 Year
  Sex: Female
  Weight: 98 kg

DRUGS (9)
  1. MOPRAL [Concomitant]
     Active Substance: OMEPRAZOLE SODIUM
     Dosage: 10 MG
     Dates: start: 20130109
  2. AUGMENTIN [Concomitant]
     Active Substance: AMOXICILLIN\CLAVULANATE POTASSIUM
     Dates: start: 201211, end: 201211
  3. CERTOLIZUMAB PEGOL RA [Suspect]
     Active Substance: CERTOLIZUMAB PEGOL
     Indication: RHEUMATOID ARTHRITIS
     Dosage: 200 MG, EV 15 DAYS
     Route: 058
     Dates: start: 20120713, end: 20121125
  4. DAFALGAN [Concomitant]
     Active Substance: ACETAMINOPHEN
     Indication: RHEUMATOID ARTHRITIS
     Dosage: 1 G AS REQUESTED
     Route: 048
  5. DAFALGAN CODEINE [Concomitant]
     Active Substance: ACETAMINOPHEN\CODEINE PHOSPHATE
     Indication: RHEUMATOID ARTHRITIS
     Dosage: 1 G AS REQUESTED
     Route: 048
  6. CORTANCYL [Concomitant]
     Active Substance: PREDNISONE
     Dosage: 7 MG
     Dates: start: 20130109
  7. CORTANCYL [Concomitant]
     Active Substance: PREDNISONE
     Indication: RHEUMATOID ARTHRITIS
     Route: 048
     Dates: start: 1994
  8. MOPRAL [Concomitant]
     Active Substance: OMEPRAZOLE SODIUM
     Indication: RHEUMATOID ARTHRITIS
     Route: 048
  9. AERIUS [Concomitant]
     Active Substance: DESLORATADINE
     Indication: HYPERSENSITIVITY
     Route: 048

REACTIONS (8)
  - Dyspnoea [Recovered/Resolved]
  - Generalised oedema [Recovered/Resolved]
  - Alopecia [Recovered/Resolved]
  - Asthma [Unknown]
  - Malaise [Unknown]
  - Oral candidiasis [Unknown]
  - Erythrosis [Unknown]
  - Adverse event [Unknown]

NARRATIVE: CASE EVENT DATE: 20120713
